FAERS Safety Report 5588208-3 (Version None)
Quarter: 2008Q1

REPORT INFORMATION
  Report Type: 
  Country: None (occurrence: None)
  Receive Date: 20080109
  Receipt Date: 20080109
  Transmission Date: 20080703
  Serious: Yes (Hospitalization)
  Sender: FDA-Public Use
  Company Number: None

PATIENT
  Age: 61 Year
  Sex: Male

DRUGS (2)
  1. WARFARIN SODIUM [Suspect]
     Indication: DEEP VEIN THROMBOSIS
     Dosage: 5MG EVERY DAY PO
     Route: 048
     Dates: start: 20070413
  2. ENOXAPARIN SODIUM [Suspect]
     Dosage: 80MG EVERY DAY SQ
     Route: 058
     Dates: start: 20070816, end: 20070831

REACTIONS (5)
  - COLONIC POLYP [None]
  - PROCEDURAL SITE REACTION [None]
  - RECTAL HAEMORRHAGE [None]
  - SYNCOPE [None]
  - THROMBOSIS [None]
